FAERS Safety Report 9168132 (Version 1)
Quarter: 2013Q1

REPORT INFORMATION
  Report Type: Spontaneous
  Country: FR (occurrence: FR)
  Receive Date: 20130318
  Receipt Date: 20130318
  Transmission Date: 20140127
  Serious: Yes (Life-Threatening)
  Sender: FDA-Public Use
  Company Number: FR-ABBOTT-13P-056-1060565-00

PATIENT
  Age: 0 Year
  Sex: Male

DRUGS (1)
  1. SYNAGIS [Suspect]
     Indication: PRODUCT USED FOR UNKNOWN INDICATION
     Dates: start: 20130102

REACTIONS (3)
  - Lung infection [Unknown]
  - Respiratory syncytial virus infection [Unknown]
  - Drug ineffective [Unknown]
